FAERS Safety Report 7426187-4 (Version None)
Quarter: 2011Q2

REPORT INFORMATION
  Report Type: 
  Country: None (occurrence: None)
  Receive Date: 20110420
  Receipt Date: 20110415
  Transmission Date: 20111010
  Serious: Yes (Life-Threatening, Hospitalization, Other)
  Sender: FDA-Public Use
  Company Number: PHHY2010AU55301

PATIENT
  Sex: Female

DRUGS (10)
  1. CLOZARIL [Suspect]
     Indication: SCHIZOPHRENIA
     Dosage: 350 MG, UNK
     Route: 048
     Dates: start: 19950626, end: 20101125
  2. METFORMIN [Concomitant]
     Dosage: 500 MG, BID
     Route: 048
  3. HALOPERIDOL [Concomitant]
     Indication: EPILEPSY
  4. AMISULPRIDE [Suspect]
     Indication: SCHIZOPHRENIA
     Dosage: 400 MG, BID
     Route: 048
  5. HALOPERIDOL [Concomitant]
     Indication: SCHIZOPHRENIA
     Dosage: 05 MG MANE
     Route: 048
     Dates: end: 20101129
  6. ROSIGLITAZONE [Concomitant]
     Dosage: 04 MG MANE
     Route: 048
  7. VALPROATE SODIUM [Suspect]
     Indication: EPILEPSY
     Dosage: 400 MG, BID
     Route: 048
  8. BENZTROPINE MESYLATE [Concomitant]
     Dosage: 04 MG MANE
     Route: 048
  9. CLOZARIL [Suspect]
     Dosage: UNK
  10. ENDEP [Concomitant]
     Dosage: 25 MG, QD
     Route: 048

REACTIONS (5)
  - SEDATION [None]
  - OVERDOSE [None]
  - FEELING ABNORMAL [None]
  - SUICIDE ATTEMPT [None]
  - LOSS OF CONSCIOUSNESS [None]
